FAERS Safety Report 12001590 (Version 1)
Quarter: 2016Q1

REPORT INFORMATION
  Report Type: Spontaneous
  Country: US (occurrence: US)
  Receive Date: 20160204
  Receipt Date: 20160204
  Transmission Date: 20160526
  Serious: No
  Sender: FDA-Public Use
  Company Number: US-PERRIGO-15US001724

PATIENT
  Sex: Female

DRUGS (1)
  1. IBUPROFEN. [Suspect]
     Active Substance: IBUPROFEN
     Indication: PRODUCT USED FOR UNKNOWN INDICATION
     Dosage: UNKNOWN,UNKNOWN
     Route: 048
     Dates: start: 2015

REACTIONS (2)
  - Abdominal discomfort [Unknown]
  - Expired product administered [Unknown]

NARRATIVE: CASE EVENT DATE: 2015
